FAERS Safety Report 4669921-9 (Version None)
Quarter: 2005Q2

REPORT INFORMATION
  Report Type: 
  Country: None (occurrence: None)
  Receive Date: 20050523
  Receipt Date: 20050425
  Transmission Date: 20051028
  Serious: Yes (Hospitalization, Other)
  Sender: FDA-Public Use
  Company Number: PHRM2005FR01388

PATIENT
  Age: 23 Year
  Sex: Male
  Weight: 70 kg

DRUGS (3)
  1. URBANYL [Concomitant]
     Indication: EPILEPSY
     Dosage: 40 MG DAILY
     Route: 048
  2. POLARAMINE [Concomitant]
     Dosage: 6 MG, QD
     Route: 048
  3. TRILEPTAL [Suspect]
     Indication: EPILEPSY
     Dosage: 1.8 G DAILY
     Route: 048
     Dates: start: 20050201, end: 20050418

REACTIONS (6)
  - CHOLESTASIS [None]
  - CYTOLYTIC HEPATITIS [None]
  - LYMPHADENOPATHY [None]
  - PYREXIA [None]
  - RASH MORBILLIFORM [None]
  - SPLENOMEGALY [None]
